FAERS Safety Report 15594071 (Version 24)
Quarter: 2020Q4

REPORT INFORMATION
  Report Type: Report from Study
  Country: CA (occurrence: CA)
  Receive Date: 20181107
  Receipt Date: 20201222
  Transmission Date: 20210113
  Serious: Yes (Hospitalization, Other)
  Sender: FDA-Public Use
  Company Number: PHHY2018CA111755

PATIENT
  Age: 22 Year
  Sex: Female

DRUGS (24)
  1. ILARIS [Suspect]
     Active Substance: CANAKINUMAB
     Indication: STILL^S DISEASE
     Dosage: 240 MG, (EVERY 4 WEEKS) Q4W
     Route: 058
     Dates: start: 20180905
  2. ILARIS [Suspect]
     Active Substance: CANAKINUMAB
     Dosage: 300 MG, Q4WEEKS
     Route: 058
     Dates: start: 20190221
  3. ILARIS [Suspect]
     Active Substance: CANAKINUMAB
     Dosage: UNK
     Route: 065
     Dates: start: 20200922
  4. PREDNISONE. [Concomitant]
     Active Substance: PREDNISONE
     Dosage: 5 MG, HS
     Route: 065
  5. ILARIS [Suspect]
     Active Substance: CANAKINUMAB
     Dosage: 150 MG, Q4WEEKS
     Route: 058
     Dates: start: 20190919
  6. ILARIS [Suspect]
     Active Substance: CANAKINUMAB
     Dosage: 240 MG, Q4W
     Route: 058
     Dates: start: 20191213
  7. ILARIS [Suspect]
     Active Substance: CANAKINUMAB
     Dosage: 240 MG, Q4W
     Route: 058
     Dates: start: 20200114
  8. METHOTREXATE. [Concomitant]
     Active Substance: METHOTREXATE
     Indication: PRODUCT USED FOR UNKNOWN INDICATION
     Dosage: UNK
     Route: 065
  9. PREDNISONE. [Concomitant]
     Active Substance: PREDNISONE
     Dosage: 7.5 MG, SINCE 2 WEEKS DIE
     Route: 065
  10. ILARIS [Suspect]
     Active Substance: CANAKINUMAB
     Dosage: 300 MG, Q4WEEKS
     Route: 058
     Dates: start: 20190503
  11. ILARIS [Suspect]
     Active Substance: CANAKINUMAB
     Dosage: 300 MG, Q4WEEKS
     Route: 058
     Dates: start: 20190628
  12. PREDNISONE. [Concomitant]
     Active Substance: PREDNISONE
     Indication: PRODUCT USED FOR UNKNOWN INDICATION
     Dosage: 1/2 CO FOR 4 DAYS
     Route: 065
  13. PREDNISONE. [Concomitant]
     Active Substance: PREDNISONE
     Dosage: 1CO 1/2 OF 5 MG DIE
     Route: 065
  14. ILARIS [Suspect]
     Active Substance: CANAKINUMAB
     Dosage: 300 MG, Q4WEEKS
     Route: 058
     Dates: start: 20181003
  15. ILARIS [Suspect]
     Active Substance: CANAKINUMAB
     Dosage: 240 MG, Q4W
     Route: 058
     Dates: start: 20200310
  16. DEXILANT [Concomitant]
     Active Substance: DEXLANSOPRAZOLE
     Indication: PRODUCT USED FOR UNKNOWN INDICATION
     Dosage: 60 MG,1 CO DIE
     Route: 065
  17. ILARIS [Suspect]
     Active Substance: CANAKINUMAB
     Dosage: 300 MG, Q4WEEKS
     Route: 058
     Dates: start: 20181031
  18. ILARIS [Suspect]
     Active Substance: CANAKINUMAB
     Dosage: 300 MG, Q4WEEKS
     Route: 058
     Dates: start: 20181129
  19. ILARIS [Suspect]
     Active Substance: CANAKINUMAB
     Dosage: 300 MG, Q4WEEKS
     Route: 058
     Dates: start: 20190531
  20. ILARIS [Suspect]
     Active Substance: CANAKINUMAB
     Dosage: 240 MG, Q4W
     Route: 058
  21. ILARIS [Suspect]
     Active Substance: CANAKINUMAB
     Dosage: 240 MG, Q4W
     Route: 058
     Dates: start: 20200430
  22. ILARIS [Suspect]
     Active Substance: CANAKINUMAB
     Dosage: 300 MG, Q4WEEKS
     Route: 058
     Dates: start: 20190729
  23. ACTEMRA [Concomitant]
     Active Substance: TOCILIZUMAB
     Indication: PRODUCT USED FOR UNKNOWN INDICATION
     Dosage: UNK
     Route: 065
  24. CALCIUM [Concomitant]
     Active Substance: CALCIUM
     Indication: PRODUCT USED FOR UNKNOWN INDICATION
     Dosage: 500 MG,1 CO DIE
     Route: 065

REACTIONS (29)
  - Skin plaque [Recovered/Resolved]
  - Sinusitis [Not Recovered/Not Resolved]
  - Rib fracture [Unknown]
  - Headache [Unknown]
  - Oropharyngeal pain [Unknown]
  - Heart rate increased [Unknown]
  - Nasal congestion [Not Recovered/Not Resolved]
  - Body temperature increased [Recovered/Resolved]
  - Pyrexia [Recovered/Resolved]
  - Psychiatric symptom [Unknown]
  - Hypersensitivity [Unknown]
  - Nasopharyngitis [Unknown]
  - Pneumonia [Recovering/Resolving]
  - Skin plaque [Not Recovered/Not Resolved]
  - Arthralgia [Not Recovered/Not Resolved]
  - Vomiting [Unknown]
  - Tachycardia [Not Recovered/Not Resolved]
  - Cough [Not Recovered/Not Resolved]
  - Chest pain [Not Recovered/Not Resolved]
  - Joint dislocation [Unknown]
  - Osteonecrosis [Unknown]
  - Pneumonia [Recovered/Resolved]
  - Blood pressure decreased [Unknown]
  - Migraine [Unknown]
  - Dermatomyositis [Unknown]
  - Erythema [Unknown]
  - Pyrexia [Recovered/Resolved]
  - Insomnia [Unknown]
  - Drug ineffective [Unknown]

NARRATIVE: CASE EVENT DATE: 201809
